FAERS Safety Report 8233869-3 (Version None)
Quarter: 2012Q1

REPORT INFORMATION
  Report Type: 
  Country: None (occurrence: None)
  Receive Date: 20120326
  Receipt Date: 20120314
  Transmission Date: 20120608
  Serious: Yes (Hospitalization, Other)
  Sender: FDA-Public Use
  Company Number: US-ELI_LILLY_AND_COMPANY-US201102007060

PATIENT
  Sex: Female
  Weight: 75.283 kg

DRUGS (24)
  1. FORTEO [Suspect]
     Indication: OSTEOPOROSIS
     Dosage: 20 UG, QD
     Route: 058
  2. FORTEO [Suspect]
     Dosage: 20 UG, QD
     Route: 058
  3. SIMVASTATIN [Concomitant]
     Dosage: UNK, UNKNOWN
     Route: 065
  4. B 1-6-12 [Concomitant]
     Dosage: UNK, UNKNOWN
     Route: 065
  5. ASPIRIN [Concomitant]
     Dosage: UNK, UNKNOWN
     Route: 065
  6. FORTEO [Suspect]
     Dosage: 20 UG, QD
     Route: 058
  7. VITAMIN D [Concomitant]
     Dosage: UNK, UNKNOWN
     Route: 065
  8. CALCIUM CARBONATE [Concomitant]
     Dosage: UNK, UNKNOWN
     Route: 065
  9. HUMULIN 70/30 [Concomitant]
     Dosage: UNK, UNKNOWN
     Route: 065
  10. FORTEO [Suspect]
     Dosage: 20 UG, QD
     Route: 058
  11. LOTREL [Concomitant]
     Dosage: UNK, UNKNOWN
     Route: 065
  12. INSULIN [Concomitant]
     Dosage: UNK, UNKNOWN
     Route: 065
  13. METHOTREXATE [Concomitant]
     Dosage: UNK, UNKNOWN
     Route: 065
  14. LEUCOVORIN CALCIUM [Concomitant]
     Dosage: UNK, UNKNOWN
     Route: 065
  15. FOLIC ACID [Concomitant]
     Dosage: UNK, UNKNOWN
     Route: 065
  16. FORTEO [Suspect]
     Dosage: 20 UG, QD
     Route: 058
  17. PREDNISONE TAB [Concomitant]
     Indication: RHEUMATOID ARTHRITIS
     Dosage: UNK, UNKNOWN
     Route: 065
  18. NIACIN [Concomitant]
     Dosage: UNK, UNKNOWN
     Route: 065
  19. COQ10 [Concomitant]
     Dosage: UNK, UNKNOWN
     Route: 065
  20. CYMBALTA [Concomitant]
     Dosage: 30 MG, QD
     Route: 065
  21. NEXIUM [Concomitant]
     Dosage: UNK, UNKNOWN
     Route: 065
  22. BENEFIBER [Concomitant]
     Dosage: UNK, UNKNOWN
     Route: 065
  23. VESICARE [Concomitant]
     Indication: URINARY INCONTINENCE
     Dosage: UNK, UNKNOWN
     Route: 065
  24. HUMIRA [Concomitant]
     Dosage: UNK, UNKNOWN
     Route: 065

REACTIONS (9)
  - NASOPHARYNGITIS [None]
  - SPINAL FRACTURE [None]
  - INFLAMMATION [None]
  - BACK PAIN [None]
  - PAIN [None]
  - MEDICATION ERROR [None]
  - OSTEOPOROTIC FRACTURE [None]
  - MOVEMENT DISORDER [None]
  - COUGH [None]
